FAERS Safety Report 6637410-8 (Version None)
Quarter: 2010Q1

REPORT INFORMATION
  Report Type: 
  Country: None (occurrence: None)
  Receive Date: 20100316
  Receipt Date: 20100309
  Transmission Date: 20100710
  Serious: Yes (Hospitalization, Disabling, Other)
  Sender: FDA-Public Use
  Company Number: US-MERCK-0907USA03400

PATIENT
  Age: 53 Year
  Sex: Female
  Weight: 77 kg

DRUGS (5)
  1. FOSAMAX [Suspect]
     Indication: OSTEOPENIA
     Route: 048
     Dates: start: 19991207, end: 20001115
  2. FOSAMAX [Suspect]
     Indication: OSTEOPOROSIS
     Route: 048
     Dates: start: 19991207, end: 20001115
  3. ACTONEL [Suspect]
     Indication: OSTEOPENIA
     Route: 065
     Dates: start: 20001115
  4. ACTONEL [Suspect]
     Route: 065
     Dates: end: 20030320
  5. PREMARIN [Concomitant]
     Route: 065
     Dates: start: 19920101

REACTIONS (51)
  - ABDOMINAL PAIN [None]
  - ABDOMINAL PAIN UPPER [None]
  - ALVEOLAR OSTEITIS [None]
  - ANXIETY [None]
  - BASAL CELL CARCINOMA [None]
  - BIPOLAR DISORDER [None]
  - BONE DISORDER [None]
  - CELLULITIS [None]
  - CHEST PAIN [None]
  - COUGH [None]
  - DEHYDRATION [None]
  - DENTAL CARIES [None]
  - DEPRESSION [None]
  - DIABETES MELLITUS [None]
  - DIVERTICULITIS [None]
  - FIBROMYALGIA [None]
  - FRACTURE [None]
  - GALLBLADDER DISORDER [None]
  - GASTROOESOPHAGEAL REFLUX DISEASE [None]
  - HYPERCHOLESTEROLAEMIA [None]
  - HYPERSENSITIVITY [None]
  - IMPAIRED HEALING [None]
  - IRRITABLE BOWEL SYNDROME [None]
  - LIBIDO DECREASED [None]
  - LICHEN PLANUS [None]
  - LOW TURNOVER OSTEOPATHY [None]
  - MIGRAINE [None]
  - MOUTH ULCERATION [None]
  - MUSCLE TWITCHING [None]
  - NAUSEA [None]
  - OBESITY [None]
  - OEDEMA PERIPHERAL [None]
  - ORAL TORUS [None]
  - OSTEONECROSIS [None]
  - PAIN [None]
  - PARONYCHIA [None]
  - PLANTAR FASCIITIS [None]
  - PNEUMONIA [None]
  - POST-TRAUMATIC STRESS DISORDER [None]
  - SEBORRHOEIC KERATOSIS [None]
  - SENSITIVITY OF TEETH [None]
  - SINUSITIS [None]
  - SLEEP APNOEA SYNDROME [None]
  - TOOTH DEPOSIT [None]
  - TOOTH DISORDER [None]
  - TOOTH FRACTURE [None]
  - TOOTH INFECTION [None]
  - VAGINAL INFECTION [None]
  - VASCULITIS [None]
  - VERTIGO [None]
  - VIRAL INFECTION [None]
